FAERS Safety Report 14609226 (Version 2)
Quarter: 2018Q4

REPORT INFORMATION
  Report Type: Spontaneous
  Country: ES (occurrence: ES)
  Receive Date: 20180307
  Receipt Date: 20181010
  Transmission Date: 20190204
  Serious: Yes (Hospitalization, Other)
  Sender: FDA-Public Use
  Company Number: ES-PFIZER INC-2018090931

PATIENT
  Age: 66 Year
  Sex: Male

DRUGS (19)
  1. VALCYTE [Suspect]
     Active Substance: VALGANCICLOVIR HYDROCHLORIDE
     Indication: ANTIVIRAL PROPHYLAXIS
     Dosage: 900 MG, 1X/DAY, WITH LUNCH
     Route: 048
  2. DEXKETOPROFEN [Concomitant]
     Active Substance: DEXKETOPROFEN
     Dosage: 25 MG, AS NEEDED, (ALSO REPORTED AS 1 AT BREAKFAST - 1 AT LUNCH - 1 AT DINNER)
     Route: 048
  3. PROGRAF [Suspect]
     Active Substance: TACROLIMUS\TACROLIMUS ANHYDROUS
     Dosage: 8.5 MG, DAILY (4.5 MG BEFORE BREAKFAST AND 4 MG BEFORE DINNER)
     Route: 048
  4. PREDNISONE. [Suspect]
     Active Substance: PREDNISONE
     Indication: IMMUNOSUPPRESSION
     Dosage: 30 MG, 1X/DAY (AT BREAKFAST TIME)
     Route: 048
  5. PREDNISONE. [Suspect]
     Active Substance: PREDNISONE
     Dosage: 20 MG, UNK
     Route: 048
     Dates: start: 20170703
  6. SEPTRIN [Suspect]
     Active Substance: SULFAMETHOXAZOLE\TRIMETHOPRIM
     Indication: ANTIFUNGAL PROPHYLAXIS
     Dosage: 1 DF, DAILY (AT LUNCH TIME)
     Route: 048
     Dates: start: 20170707
  7. OMEPRAZOLE. [Concomitant]
     Active Substance: OMEPRAZOLE
     Dosage: 20 MG, 1X/DAY, AT BREAKFAST
  8. ABELCET [Concomitant]
     Active Substance: AMPHOTERICIN B\DIMYRISTOYLPHOSPHATIDYLCHOLINE, DL-\DIMYRISTOYLPHOSPHATIDYLGLYCEROL, DL-
     Dosage: 500 MG, WEEKLY (ON MONDAY IN THE AFTERNOON)
     Route: 055
  9. PREDNISONE. [Suspect]
     Active Substance: PREDNISONE
     Dosage: 60 MG, 1X/DAY AT BREAKFAST TIME, (ALSO REPORTED AS 30 MG, TWICE A DAY)
     Route: 048
     Dates: start: 20170703, end: 2017
  10. CELLCEPT [Suspect]
     Active Substance: MYCOPHENOLATE MOFETIL\MYCOPHENOLATE MOFETIL HYDROCHLORIDE
     Indication: IMMUNOSUPPRESSION
     Dosage: 500 MG, 1X/DAY (2 AT BREAKFAST AND 2 AT DINNER)
     Route: 048
     Dates: start: 20170703
  11. LORAZEPAM. [Concomitant]
     Active Substance: LORAZEPAM
     Dosage: 1 MG, 1X/DAY (AT BEDTIME)
  12. ZITROMAX [Suspect]
     Active Substance: AZITHROMYCIN
     Indication: IMMUNOMODULATORY THERAPY
     Dosage: 250 MG, ALTERNATE DAY (EVERY 48 HOURS ON  MONDAY/WEDNESDAY/FRIDAY AT LUNCH)
     Route: 048
     Dates: start: 20170801
  13. VALCYTE [Suspect]
     Active Substance: VALGANCICLOVIR HYDROCHLORIDE
     Dosage: 450 MG, 1X/DAY, AT LUNCH TIME
     Route: 048
     Dates: start: 20170707
  14. PROGRAF [Suspect]
     Active Substance: TACROLIMUS\TACROLIMUS ANHYDROUS
     Indication: IMMUNOSUPPRESSION
     Dosage: 5 MG, 1X/DAY [ALSO REPORTED AS: 5 MG, TWICE A DAY (1  IN MORNING AND 1 BEFORE DINNER)]
     Route: 048
     Dates: end: 20170704
  15. SEPTRIN [Suspect]
     Active Substance: SULFAMETHOXAZOLE\TRIMETHOPRIM
     Indication: ANTIFUNGAL PROPHYLAXIS
  16. CELLCEPT [Suspect]
     Active Substance: MYCOPHENOLATE MOFETIL\MYCOPHENOLATE MOFETIL HYDROCHLORIDE
     Dosage: 1000 MG, DAILY [ALSO REPORTED AS 2X/DAY, 500 MG, 4X/DAY (2 AT BREAKFAST AND 2 AT DINNER)
     Route: 048
     Dates: start: 20170703, end: 2017
  17. CALCIUM + VITAMIN D [Concomitant]
     Active Substance: CALCIUM\VITAMIN D
     Dosage: UNK, DAILY (ALSO REPORTED AS TWICE A DAY)
     Route: 048
  18. PARACETAMOL [Concomitant]
     Active Substance: ACETAMINOPHEN
     Dosage: 500 MG, AS NEEDED,  (ALSO REPORTED AS 2 AT BREAKFAST - 2 AT LUNCH - 2 AT DINNER)
     Route: 048
  19. CELLCEPT [Suspect]
     Active Substance: MYCOPHENOLATE MOFETIL\MYCOPHENOLATE MOFETIL HYDROCHLORIDE
     Dosage: 500 MG, 1X/DAY [ALSO REPORTED AS 500 MG, FOUR  TIMES A DAY]
     Dates: start: 2017

REACTIONS (9)
  - Flank pain [Unknown]
  - Paraesthesia [Unknown]
  - Hypoaesthesia [Unknown]
  - Gait disturbance [Unknown]
  - Fatigue [Unknown]
  - Bone pain [Unknown]
  - Large intestinal ulcer [Unknown]
  - Pyrexia [Not Recovered/Not Resolved]
  - Myalgia [Unknown]

NARRATIVE: CASE EVENT DATE: 2017
